FAERS Safety Report 20628252 (Version 1)
Quarter: 2022Q1

REPORT INFORMATION
  Report Type: Spontaneous
  Country: US (occurrence: US)
  Receive Date: 20220323
  Receipt Date: 20220323
  Transmission Date: 20220423
  Serious: No
  Sender: FDA-Public Use
  Company Number: US-MYOVANT SCIENCES GMBH-2021MYSCI1200001

PATIENT
  Age: 37 Year
  Sex: Female

DRUGS (2)
  1. MYFEMBREE [Suspect]
     Active Substance: ESTRADIOL HEMIHYDRATE\NORETHINDRONE ACETATE\RELUGOLIX
     Indication: Uterine leiomyoma
     Dosage: 1 TAB, QD
     Route: 048
     Dates: start: 20211014, end: 20220218
  2. MYFEMBREE [Suspect]
     Active Substance: ESTRADIOL HEMIHYDRATE\NORETHINDRONE ACETATE\RELUGOLIX
     Indication: Heavy menstrual bleeding
     Dosage: 1 TAB, QD
     Route: 048
     Dates: start: 20220220, end: 20220311

REACTIONS (9)
  - Muscle spasms [Not Recovered/Not Resolved]
  - Dehydration [Unknown]
  - Amenorrhoea [Not Recovered/Not Resolved]
  - Dry mouth [Unknown]
  - Abdominal pain [Unknown]
  - Pain [Unknown]
  - Nausea [Recovered/Resolved]
  - Pelvic pain [Not Recovered/Not Resolved]
  - Intermenstrual bleeding [Not Recovered/Not Resolved]

NARRATIVE: CASE EVENT DATE: 20211001
